FAERS Safety Report 12078956 (Version 2)
Quarter: 2016Q2

REPORT INFORMATION
  Report Type: Spontaneous
  Country: US (occurrence: US)
  Receive Date: 20160216
  Receipt Date: 20160505
  Transmission Date: 20160815
  Serious: No
  Sender: FDA-Public Use
  Company Number: US-ELI_LILLY_AND_COMPANY-US201601009920

PATIENT
  Sex: Female
  Weight: 77.82 kg

DRUGS (2)
  1. GEMZAR [Suspect]
     Active Substance: GEMCITABINE HYDROCHLORIDE
     Indication: BLADDER CANCER
     Dosage: 1000 MG/M2, CYCLICAL
     Route: 042
     Dates: start: 20160106
  2. CISPLATIN. [Concomitant]
     Active Substance: CISPLATIN
     Indication: BLADDER CANCER
     Dosage: 70 MG/M2, CYCLICAL

REACTIONS (3)
  - Medication error [Unknown]
  - Injection site irritation [Recovered/Resolved]
  - Injection site pain [Recovered/Resolved]
